FAERS Safety Report 19592276 (Version 2)
Quarter: 2021Q3

REPORT INFORMATION
  Report Type: Report from Study
  Country: None (occurrence: US)
  Receive Date: 20210722
  Receipt Date: 20210722
  Transmission Date: 20211014
  Serious: Yes (Death)
  Sender: FDA-Public Use
  Company Number: US-ABBVIE-21K-163-4002539-00

PATIENT
  Age: 87 Year
  Sex: Female

DRUGS (4)
  1. VENCLEXTA [Suspect]
     Active Substance: VENETOCLAX
     Indication: ACUTE MYELOID LEUKAEMIA
     Dosage: TAKE 4 TABLET(S) BY MOUTH EVERY DAY
     Route: 048
  2. LUCENTIS [Suspect]
     Active Substance: RANIBIZUMAB
     Indication: CHOROIDAL NEOVASCULARISATION
     Route: 065
  3. VENCLEXTA [Suspect]
     Active Substance: VENETOCLAX
     Indication: DEFICIENCY ANAEMIA
  4. LUCENTIS [Suspect]
     Active Substance: RANIBIZUMAB
     Indication: MACULAR DEGENERATION

REACTIONS (1)
  - Death [Fatal]

NARRATIVE: CASE EVENT DATE: 20210530
